FAERS Safety Report 9924259 (Version 1)
Quarter: 2014Q1

REPORT INFORMATION
  Report Type: Spontaneous
  Country: FR (occurrence: FR)
  Receive Date: 20140226
  Receipt Date: 20140226
  Transmission Date: 20141002
  Serious: Yes (Death)
  Sender: FDA-Public Use
  Company Number: FR-ROCHE-1354945

PATIENT
  Age: 66 Year
  Sex: Male

DRUGS (32)
  1. ROCEPHINE [Suspect]
     Indication: SEPSIS
     Route: 042
     Dates: start: 20131227, end: 20140108
  2. ROCEPHINE [Suspect]
     Route: 042
     Dates: start: 20140113
  3. TRILEPTAL [Suspect]
     Indication: EPILEPSY
     Dosage: 300 MG
     Route: 048
     Dates: start: 20131214, end: 20140109
  4. KEPPRA [Suspect]
     Indication: EPILEPSY
     Dosage: 100 MG/ML
     Route: 042
     Dates: start: 20131214, end: 20131227
  5. KEPPRA [Suspect]
     Dosage: 500 MG
     Route: 042
     Dates: start: 20131227, end: 20140112
  6. OFLOCET (FRANCE) [Suspect]
     Indication: EPILEPSY
     Dosage: 200 MG
     Route: 048
     Dates: start: 20131224, end: 20140109
  7. URBANYL [Suspect]
     Indication: EPILEPSY
     Dosage: 10 MG IN THE MORNING, 5 MG AT NOON, 10 MG IN THE EVENING
     Route: 048
     Dates: start: 20131219, end: 20140112
  8. MOPRAL (FRANCE) [Suspect]
     Indication: EPILEPSY
     Dosage: 20 MG
     Route: 048
     Dates: start: 20131221, end: 20140112
  9. ZELITREX [Suspect]
     Indication: EPILEPSY
     Dosage: 500 MG
     Route: 048
     Dates: start: 20131228, end: 20140109
  10. DOCETAXEL [Concomitant]
     Dosage: 3 COURSES
     Route: 065
  11. DOCETAXEL [Concomitant]
     Route: 065
     Dates: start: 201302, end: 201304
  12. CISPLATINE [Concomitant]
     Dosage: 3 COURSES
     Route: 065
  13. CISPLATINE [Concomitant]
     Route: 065
     Dates: start: 201302, end: 201304
  14. CISPLATINE [Concomitant]
     Route: 065
     Dates: start: 201307, end: 201309
  15. 5-FLUOROURACIL [Concomitant]
     Dosage: 3 COURSES
     Route: 065
  16. 5-FLUOROURACIL [Concomitant]
     Route: 065
     Dates: start: 201307, end: 201309
  17. CARBOPLATIN [Concomitant]
     Route: 065
     Dates: start: 201302, end: 201304
  18. CETUXIMAB [Concomitant]
     Route: 065
     Dates: start: 201302, end: 201304
  19. CETUXIMAB [Concomitant]
     Route: 065
     Dates: start: 20131031, end: 20131206
  20. METHOTREXATE [Concomitant]
  21. PHENYTOINE [Concomitant]
     Route: 065
     Dates: start: 20131212
  22. RIVOTRIL [Concomitant]
     Route: 065
     Dates: start: 20131213, end: 20131220
  23. RIVOTRIL [Concomitant]
     Route: 042
     Dates: start: 20140114
  24. SOLU-MEDROL [Concomitant]
     Route: 065
     Dates: start: 20131213
  25. SOLU-MEDROL [Concomitant]
     Route: 065
     Dates: start: 20140103
  26. SOLU-MEDROL [Concomitant]
     Route: 065
     Dates: start: 20140105
  27. SOLUPRED (FRANCE) [Concomitant]
     Route: 065
     Dates: start: 20140109
  28. AUGMENTIN [Concomitant]
     Route: 042
     Dates: start: 20131222, end: 20131227
  29. BRICANYL [Concomitant]
     Route: 065
     Dates: start: 20131219, end: 20140109
  30. ATROVENT [Concomitant]
     Route: 065
     Dates: start: 20131219, end: 20140109
  31. METHYLPREDNISOLONE [Concomitant]
     Route: 042
  32. POLARAMINE [Concomitant]

REACTIONS (1)
  - Toxic epidermal necrolysis [Fatal]
